FAERS Safety Report 4751538-9 (Version None)
Quarter: 2005Q3

REPORT INFORMATION
  Report Type: 
  Country: None (occurrence: None)
  Receive Date: 20050822
  Receipt Date: 20050809
  Transmission Date: 20060218
  Serious: Yes (Hospitalization)
  Sender: FDA-Public Use
  Company Number: HQWYE169612JUL05

PATIENT
  Age: 75 Year
  Sex: Male

DRUGS (10)
  1. AMIODARONE HCL [Suspect]
     Indication: VENTRICULAR TACHYCARDIA
     Dosage: 100 MG 1X PER 1 DAY  ORAL
     Route: 048
     Dates: start: 20050625, end: 20050704
  2. TICLOPIDINE HCL [Suspect]
     Dosage: 100 MG 2X PER 1 DAY  ORAL
     Route: 048
     Dates: start: 20050515, end: 20050706
  3. CARVEDILOL [Concomitant]
  4. CALCIUM POLYSTYRENE SULFONATE [Concomitant]
  5. BAYASPIRINA (ACETYLSALICYLIC ACID) [Concomitant]
  6. PREDNISOLONE [Concomitant]
  7. LEPETAN (BUPRENORPHINE HYDROCHLORIDE) [Concomitant]
  8. NOREPINEPHRINE [Concomitant]
  9. DIPRIVAN [Concomitant]
  10. ARELIX (PIRETANIDE) [Concomitant]

REACTIONS (8)
  - ALANINE AMINOTRANSFERASE INCREASED [None]
  - ASPARTATE AMINOTRANSFERASE INCREASED [None]
  - BLOOD ALKALINE PHOSPHATASE INCREASED [None]
  - BLOOD BILIRUBIN INCREASED [None]
  - GAMMA-GLUTAMYLTRANSFERASE INCREASED [None]
  - JAUNDICE [None]
  - LIVER DISORDER [None]
  - STAPHYLOCOCCAL INFECTION [None]
